FAERS Safety Report 4850800-9 (Version None)
Quarter: 2005Q4

REPORT INFORMATION
  Report Type: 
  Country: None (occurrence: None)
  Receive Date: 20051208
  Receipt Date: 20051125
  Transmission Date: 20060501
  Serious: Yes (Other)
  Sender: FDA-Public Use
  Company Number: 2005160848

PATIENT
  Age: 60 Year
  Sex: Male
  Weight: 99.3377 kg

DRUGS (15)
  1. VIAGRA [Suspect]
     Indication: ERECTILE DYSFUNCTION
     Dosage: 50 MG (50 MG, AS NECESSARY), ORAL
     Route: 048
     Dates: start: 20040101
  2. LEVITRA [Suspect]
     Indication: ERECTILE DYSFUNCTION
  3. CIALIS [Suspect]
     Indication: ERECTILE DYSFUNCTION
  4. ASPIRIN [Concomitant]
  5. PLAVIX [Concomitant]
  6. ACCUPRIL [Concomitant]
  7. ZETIA [Concomitant]
  8. PRAVACHOL [Concomitant]
  9. TOPROL (METOPROLOL) [Concomitant]
  10. CLONIDINE [Concomitant]
  11. MULTIVITAMIN [Concomitant]
  12. FOLTX (CYANOCOBALAMIN, FOLIC ACID, PYRIDOXINE) [Concomitant]
  13. TRICOR [Concomitant]
  14. KLOR-CON [Concomitant]
  15. LASIX [Concomitant]

REACTIONS (3)
  - ARTERIAL BYPASS OPERATION [None]
  - CORONARY ARTERIAL STENT INSERTION [None]
  - DRUG EFFECT DECREASED [None]
